FAERS Safety Report 6900637-1 (Version None)
Quarter: 2010Q3

REPORT INFORMATION
  Report Type: 
  Country: None (occurrence: None)
  Receive Date: 20100803
  Receipt Date: 20100720
  Transmission Date: 20110219
  Serious: No
  Sender: FDA-Public Use
  Company Number: US-B.I. PHARMACEUTICALS,INC./RIDGEFIELD-2010-BP-08435BP

PATIENT
  Age: 75 Year
  Sex: Male

DRUGS (10)
  1. SPIRIVA [Suspect]
     Indication: CHRONIC OBSTRUCTIVE PULMONARY DISEASE
     Dosage: 18 MCG
     Route: 055
     Dates: start: 20100501, end: 20100601
  2. SPIRIVA [Suspect]
     Dosage: 18 MCG
     Route: 055
     Dates: start: 20100701
  3. ASPIRIN [Concomitant]
     Indication: PROPHYLAXIS
  4. GEMFIBROZIL [Concomitant]
     Indication: BLOOD CHOLESTEROL INCREASED
  5. RAMIPRIL [Concomitant]
     Indication: HYPERTENSION
  6. COREG [Concomitant]
     Indication: HYPERTENSION
  7. FUROSEMIDE [Concomitant]
     Indication: FLUID RETENTION
  8. FISH OIL [Concomitant]
     Indication: PROPHYLAXIS
  9. VITAMIN TAB [Concomitant]
     Indication: PROPHYLAXIS
  10. FLAX SEED OIL [Concomitant]
     Indication: PROPHYLAXIS

REACTIONS (1)
  - SEMEN DISCOLOURATION [None]
